FAERS Safety Report 11198241 (Version 1)
Quarter: 2015Q2

REPORT INFORMATION
  Report Type: Spontaneous
  Country: DK (occurrence: DK)
  Receive Date: 20150618
  Receipt Date: 20150618
  Transmission Date: 20150821
  Serious: Yes (Hospitalization)
  Sender: FDA-Public Use
  Company Number: DK-ROCHE-1595575

PATIENT
  Age: 51 Year
  Sex: Female

DRUGS (12)
  1. COPEGUS [Suspect]
     Active Substance: RIBAVIRIN
     Indication: HEPATITIS C
     Dosage: STRENGTH: 200 MG
     Route: 048
     Dates: start: 20150401, end: 20150530
  2. METADON [Concomitant]
     Active Substance: METHADONE HYDROCHLORIDE
     Indication: PAIN
     Dosage: REPORTED AS METADON ^DAK^
     Route: 065
     Dates: start: 20130206
  3. BETNOVAT [Concomitant]
     Active Substance: BETAMETHASONE
     Indication: PSORIASIS
     Route: 065
     Dates: start: 20130206
  4. LYRICA [Concomitant]
     Active Substance: PREGABALIN
     Indication: ANXIETY
     Route: 065
     Dates: start: 20150113, end: 20150604
  5. VAGIFEM [Concomitant]
     Active Substance: ESTRADIOL
     Indication: HORMONE THERAPY
     Route: 065
     Dates: start: 20150327
  6. CENTYL MED KALIUMKLORID [Concomitant]
     Active Substance: BENDROFLUMETHIAZIDE\POTASSIUM CHLORIDE
     Indication: DIURETIC THERAPY
     Route: 065
     Dates: start: 20140424, end: 20150522
  7. DAIVOBET [Concomitant]
     Active Substance: BETAMETHASONE DIPROPIONATE\CALCIPOTRIENE
     Indication: PSORIASIS
     Route: 065
     Dates: start: 20140424
  8. PERILAX (DENMARK) [Concomitant]
     Indication: CONSTIPATION
     Route: 065
     Dates: start: 20131205
  9. SYMBICORT [Concomitant]
     Active Substance: BUDESONIDE\FORMOTEROL FUMARATE DIHYDRATE
     Indication: ASTHMA
     Dosage: REPORTED AS SYMBICORT FORTE TURBOHALER
     Route: 065
     Dates: start: 20150113
  10. DAKLINZA [Suspect]
     Active Substance: DACLATASVIR
     Indication: HEPATITIS C
     Dosage: STRENGTH: 60 MG
     Route: 048
     Dates: start: 20150401, end: 20150530
  11. SOVALDI [Suspect]
     Active Substance: SOFOSBUVIR
     Indication: HEPATITIS C
     Dosage: STRENGTH: 400 MG
     Route: 048
     Dates: start: 20150401, end: 20150530
  12. HEXALID [Concomitant]
     Indication: SEDATIVE THERAPY
     Route: 065
     Dates: start: 20131205, end: 20150604

REACTIONS (5)
  - Hallucination, visual [Recovering/Resolving]
  - Hallucination, auditory [Recovering/Resolving]
  - Abnormal dreams [Unknown]
  - Confusional state [Recovering/Resolving]
  - Nightmare [Unknown]

NARRATIVE: CASE EVENT DATE: 20150522
